FAERS Safety Report 8361949-0 (Version None)
Quarter: 2012Q2

REPORT INFORMATION
  Report Type: 
  Country: None (occurrence: None)
  Receive Date: 20120515
  Receipt Date: 20120509
  Transmission Date: 20120825
  Serious: Yes (Other)
  Sender: FDA-Public Use
  Company Number: FR-B.I. PHARMACEUTICALS,INC./RIDGEFIELD-2010-FF-00979FF

PATIENT
  Sex: Female
  Weight: 64 kg

DRUGS (4)
  1. PRADAXA [Suspect]
     Indication: THROMBOSIS PROPHYLAXIS
     Dosage: 220 MG
     Route: 048
     Dates: start: 20101116, end: 20101121
  2. ACETAMINOPHEN [Concomitant]
     Indication: PAIN
     Dosage: 3 G
     Route: 048
     Dates: start: 20101116
  3. NIMESULIDE [Concomitant]
     Indication: PAIN
     Dosage: 200 MG
     Route: 048
     Dates: start: 20101117, end: 20101121
  4. PRADAXA [Suspect]
     Indication: KNEE ARTHROPLASTY

REACTIONS (1)
  - PHLEBITIS [None]
